FAERS Safety Report 4994762-2 (Version None)
Quarter: 2006Q1

REPORT INFORMATION
  Report Type: 
  Country: None (occurrence: None)
  Receive Date: 20060313
  Receipt Date: 20050607
  Transmission Date: 20060701
  Serious: Yes (Other)
  Sender: FDA-Public Use
  Company Number: PHEH2005US06412

PATIENT
  Sex: Female

DRUGS (2)
  1. TRILEPTAL [Suspect]
  2. DIOVAN [Concomitant]

REACTIONS (1)
  - PHARYNGEAL OEDEMA [None]
